FAERS Safety Report 20663876 (Version 3)
Quarter: 2022Q2

REPORT INFORMATION
  Report Type: Report from Study
  Country: FR (occurrence: FR)
  Receive Date: 20220401
  Receipt Date: 20220525
  Transmission Date: 20220721
  Serious: Yes (Death, Other)
  Sender: FDA-Public Use
  Company Number: FR-GILEAD-2022-0566107

PATIENT
  Sex: Female
  Weight: 81 kg

DRUGS (2)
  1. SACITUZUMAB GOVITECAN [Suspect]
     Active Substance: SACITUZUMAB GOVITECAN
     Indication: Triple negative breast cancer
     Dosage: 7.5 MG/KG, CYCLE 1, DAY 8
     Route: 042
     Dates: start: 20211223, end: 20211223
  2. SACITUZUMAB GOVITECAN [Suspect]
     Active Substance: SACITUZUMAB GOVITECAN
     Dosage: 10 MG/KG, CYCLE 1, DAY 1
     Route: 042
     Dates: start: 20211215, end: 20211215

REACTIONS (3)
  - Disease progression [Fatal]
  - General physical condition abnormal [Unknown]
  - Liver function test abnormal [Unknown]
